FAERS Safety Report 13327986 (Version 1)
Quarter: 2017Q1

REPORT INFORMATION
  Report Type: Spontaneous
  Country: US (occurrence: US)
  Receive Date: 20170313
  Receipt Date: 20170313
  Transmission Date: 20170428
  Serious: No
  Sender: FDA-Public Use
  Company Number: US-JNJFOC-20170213458

PATIENT
  Age: 44 Year
  Sex: Female

DRUGS (2)
  1. MENS ROGAINE EXTRA STRENGTH [Suspect]
     Active Substance: MINOXIDIL
     Route: 061
  2. MENS ROGAINE EXTRA STRENGTH [Suspect]
     Active Substance: MINOXIDIL
     Indication: ALOPECIA
     Dosage: ONCE EVERY 3-4 DAYS
     Route: 061

REACTIONS (6)
  - Erythema [Recovered/Resolved]
  - Intentional product misuse [Unknown]
  - Product use issue [Unknown]
  - Pruritus [Recovered/Resolved]
  - Dandruff [Recovered/Resolved]
  - Alopecia [Not Recovered/Not Resolved]
